FAERS Safety Report 6165349-3 (Version None)
Quarter: 2009Q2

REPORT INFORMATION
  Report Type: 
  Country: None (occurrence: None)
  Receive Date: 20090421
  Receipt Date: 20090421
  Transmission Date: 20091009
  Serious: No
  Sender: FDA-Public Use
  Company Number: None

PATIENT
  Age: 57 Year
  Sex: Male
  Weight: 111.1313 kg

DRUGS (2)
  1. REGLAN [Suspect]
     Indication: GASTROINTESTINAL DISORDER
     Dosage: 10 MG BEFORE EACH MEAL PO
     Route: 048
     Dates: start: 20090120, end: 20090420
  2. REGLAN [Concomitant]

REACTIONS (1)
  - DYSKINESIA [None]
